FAERS Safety Report 4723972-4 (Version None)
Quarter: 2005Q3

REPORT INFORMATION
  Report Type: 
  Country: None (occurrence: None)
  Receive Date: 20050725
  Receipt Date: 20050715
  Transmission Date: 20060218
  Serious: Yes (Hospitalization)
  Sender: FDA-Public Use
  Company Number: CH-ABBOTT-05P-151-0305930-00

PATIENT
  Age: 79 Year
  Sex: Female

DRUGS (7)
  1. KLACID FILMTABS [Suspect]
     Indication: GASTRITIS
     Route: 048
     Dates: start: 20050528, end: 20050606
  2. CO-AMOXIMEPHA [Suspect]
     Indication: GASTRITIS
     Route: 048
     Dates: start: 20050528, end: 20050606
  3. ESOMEPRAZOLE [Concomitant]
     Indication: GASTRITIS
     Route: 048
     Dates: start: 20050101
  4. SIMCORA [Concomitant]
     Indication: HYPERCHOLESTEROLAEMIA
     Route: 048
  5. RALOXIFENE HCL [Concomitant]
     Indication: OSTEOPOROSIS
     Route: 048
  6. ASPIRIN [Concomitant]
     Indication: DRUG USE FOR UNKNOWN INDICATION
     Route: 048
  7. CALCIUM GLUCONATE [Concomitant]
     Indication: DRUG USE FOR UNKNOWN INDICATION

REACTIONS (10)
  - ASTHENIA [None]
  - CHILLS [None]
  - CONFUSIONAL STATE [None]
  - FALL [None]
  - GAIT DISTURBANCE [None]
  - GENERAL PHYSICAL HEALTH DETERIORATION [None]
  - MYALGIA [None]
  - PLEURAL EFFUSION [None]
  - PYREXIA [None]
  - SOMNOLENCE [None]
